FAERS Safety Report 4785563-9 (Version None)
Quarter: 2005Q4

REPORT INFORMATION
  Report Type: 
  Country: None (occurrence: None)
  Receive Date: 20051003
  Receipt Date: 20041203
  Transmission Date: 20060501
  Serious: Yes (Other)
  Sender: FDA-Public Use
  Company Number: GB-GLAXOSMITHKLINE-B0359431A

PATIENT
  Sex: Female

DRUGS (2)
  1. SEROXAT [Suspect]
     Indication: ANXIETY
     Route: 065
     Dates: start: 20020108
  2. MEFENAMIC ACID [Suspect]
     Route: 065

REACTIONS (13)
  - ALCOHOL USE [None]
  - ANAEMIA [None]
  - ANGER [None]
  - ANXIETY [None]
  - CONDITION AGGRAVATED [None]
  - DECREASED INTEREST [None]
  - DEPRESSION [None]
  - DISTURBANCE IN ATTENTION [None]
  - DRUG WITHDRAWAL SYNDROME [None]
  - EAR DISCOMFORT [None]
  - MULTIPLE DRUG OVERDOSE [None]
  - NAUSEA [None]
  - PANIC ATTACK [None]
